FAERS Safety Report 8070995 (Version 2)
Quarter: 2012Q4

REPORT INFORMATION
  Report Type: Report from Study
  Country: FR (occurrence: FR)
  Receive Date: 20110805
  Receipt Date: 20120830
  Transmission Date: 20130627
  Serious: Yes (Hospitalization)
  Sender: FDA-Public Use
  Company Number: FR-CELGENEUS-056-21880-11072435

PATIENT
  Age: 43 Year
  Sex: Female
  Weight: 62 kg

DRUGS (6)
  1. REVLIMID [Suspect]
     Indication: B-CELL LYMPHOMA
     Dosage: 25 Milligram
     Route: 048
     Dates: start: 20110302, end: 20110624
  2. CYCLOPHOSPHAMIDE [Suspect]
     Indication: B-CELL LYMPHOMA
     Dosage: 750 milligram/sq. meter
     Route: 041
     Dates: start: 20110302, end: 20110615
  3. DOXORUBICIN [Suspect]
     Indication: B-CELL LYMPHOMA
     Dosage: 50 milligram/sq. meter
     Route: 041
     Dates: start: 20110302, end: 20110615
  4. VINCRISTINE [Suspect]
     Indication: B-CELL LYMPHOMA
     Dosage: 1.4 milligram/sq. meter
     Route: 041
     Dates: start: 20110302, end: 20110615
  5. PREDNISONE [Suspect]
     Indication: B-CELL LYMPHOMA
     Dosage: 40 milligram/sq. meter
     Route: 048
     Dates: start: 20110302, end: 20110615
  6. RITUXIMAB [Suspect]
     Indication: B-CELL LYMPHOMA
     Dosage: 375 milligram/sq. meter
     Route: 041
     Dates: start: 20110302, end: 20110615

REACTIONS (2)
  - Cystitis [Recovered/Resolved with Sequelae]
  - Thrombocytopenia [None]
